FAERS Safety Report 10571443 (Version 5)
Quarter: 2015Q2

REPORT INFORMATION
  Report Type: Spontaneous
  Country: US (occurrence: US)
  Receive Date: 20141107
  Receipt Date: 20150626
  Transmission Date: 20150821
  Serious: No
  Sender: FDA-Public Use
  Company Number: US-GLAXOSMITHKLINE-A1090438A

PATIENT

DRUGS (28)
  1. TYKERB [Suspect]
     Active Substance: LAPATINIB DITOSYLATE
     Indication: BREAST CANCER METASTATIC
     Dosage: 1000 MG, QD
     Route: 065
  2. METFORMIN [Concomitant]
     Active Substance: METFORMIN HYDROCHLORIDE
  3. BABY ASPIRIN [Concomitant]
     Active Substance: ASPIRIN
  4. MAGIC MOUTHWASH [Concomitant]
     Active Substance: DIPHENHYDRAMINE HYDROCHLORIDE\LIDOCAINE HYDROCHLORIDE\NYSTATIN
  5. NYSTOP [Concomitant]
     Active Substance: NYSTATIN
  6. ONDANSETRON [Concomitant]
     Active Substance: ONDANSETRON
  7. TRASTUZUMAB [Concomitant]
     Active Substance: TRASTUZUMAB
  8. CLARITIN [Concomitant]
     Active Substance: LORATADINE
  9. OXYCONTIN [Concomitant]
     Active Substance: OXYCODONE HYDROCHLORIDE
  10. FLUTICASONE NASAL SPRAY [Concomitant]
     Active Substance: FLUTICASONE\FLUTICASONE PROPIONATE
  11. XGEVA [Concomitant]
     Active Substance: DENOSUMAB
  12. TYKERB [Suspect]
     Active Substance: LAPATINIB DITOSYLATE
     Indication: BREAST CANCER
     Dosage: 3 UNK, QD FOR 7 DAYS
     Route: 048
     Dates: start: 201409
  13. SIMVASTATIN. [Concomitant]
     Active Substance: SIMVASTATIN
  14. FLONASE [Concomitant]
     Active Substance: FLUTICASONE PROPIONATE
  15. PEPCID AC [Concomitant]
     Active Substance: FAMOTIDINE
  16. LISINOPRIL. [Suspect]
     Active Substance: LISINOPRIL
     Indication: PRODUCT USED FOR UNKNOWN INDICATION
     Dosage: 10 MG, QD
     Route: 065
     Dates: start: 2007
  17. LORAZEPAM. [Concomitant]
     Active Substance: LORAZEPAM
  18. GABAPENTIN. [Concomitant]
     Active Substance: GABAPENTIN
  19. MELATONIN [Concomitant]
     Active Substance: MELATONIN
  20. SILVER SULFADIAZENE [Concomitant]
     Active Substance: SILVER SULFADIAZINE
  21. VITAMIN D3 [Concomitant]
     Active Substance: CHOLECALCIFEROL
  22. TYLENOL ARTHRITIS PAIN [Concomitant]
     Active Substance: ACETAMINOPHEN
  23. LIDOCAINE. [Concomitant]
     Active Substance: LIDOCAINE
  24. HERCEPTIN [Concomitant]
     Active Substance: TRASTUZUMAB
  25. ZOFRAN [Concomitant]
     Active Substance: ONDANSETRON HYDROCHLORIDE
  26. OLANZAPINE. [Concomitant]
     Active Substance: OLANZAPINE
  27. VALIUM [Concomitant]
     Active Substance: DIAZEPAM
  28. PROCHLORPERAZINE MALEATE. [Concomitant]
     Active Substance: PROCHLORPERAZINE MALEATE

REACTIONS (9)
  - Hypotension [Recovered/Resolved]
  - Nausea [Recovered/Resolved]
  - Constipation [Not Recovered/Not Resolved]
  - Dizziness postural [Unknown]
  - Diarrhoea [Recovered/Resolved]
  - Nail disorder [Recovered/Resolved]
  - Alopecia [Not Recovered/Not Resolved]
  - Volume blood decreased [Unknown]
  - Dehydration [Unknown]

NARRATIVE: CASE EVENT DATE: 201409
